FAERS Safety Report 8183470-5 (Version None)
Quarter: 2012Q1

REPORT INFORMATION
  Report Type: 
  Country: None (occurrence: None)
  Receive Date: 20120305
  Receipt Date: 20120228
  Transmission Date: 20120608
  Serious: Yes (Death, Hospitalization)
  Sender: FDA-Public Use
  Company Number: FR-SANOFI-AVENTIS-2011SA069033

PATIENT
  Age: 68 Year
  Sex: Male

DRUGS (9)
  1. FLECAINIDE ACETATE [Suspect]
  2. ALLOPURINOL [Concomitant]
  3. ETOPOPHOS PRESERVATIVE FREE [Suspect]
     Dates: start: 20110916
  4. VITAMIN K TAB [Concomitant]
  5. LOVENOX [Suspect]
  6. PIPERACILLIN AND TAZOBACTAM [Suspect]
     Route: 042
     Dates: start: 20110915
  7. AMIKACIN [Suspect]
     Dates: start: 20110915
  8. PREVISCAN [Concomitant]
     Route: 048
  9. CORTICOSTEROID NOS [Concomitant]
     Dates: start: 20110826

REACTIONS (5)
  - ANURIA [None]
  - COMA [None]
  - DYSPNOEA [None]
  - VENTRICULAR TACHYCARDIA [None]
  - CYANOSIS [None]
